FAERS Safety Report 19011362 (Version 1)
Quarter: 2021Q1

REPORT INFORMATION
  Report Type: Report from Study
  Country: US (occurrence: US)
  Receive Date: 20210316
  Receipt Date: 20210316
  Transmission Date: 20210420
  Serious: Yes (Other)
  Sender: FDA-Public Use
  Company Number: NVSC2021US055052

PATIENT
  Age: 52 Year
  Sex: Female

DRUGS (2)
  1. BENDAMUSTINE [Concomitant]
     Active Substance: BENDAMUSTINE
     Indication: CHEMOTHERAPY
     Dosage: UNK
     Route: 065
  2. KYMRIAH [Suspect]
     Active Substance: TISAGENLECLEUCEL
     Indication: HIGH-GRADE B-CELL LYMPHOMA
     Dosage: UNK UNK, ONCE/SINGLE
     Route: 042
     Dates: start: 20200424

REACTIONS (3)
  - High-grade B-cell lymphoma [Unknown]
  - Musculoskeletal toxicity [Unknown]
  - Malignant neoplasm progression [Unknown]
